FAERS Safety Report 10236944 (Version 1)
Quarter: 2014Q2

REPORT INFORMATION
  Report Type: Spontaneous
  Country: ES (occurrence: ES)
  Receive Date: 20140613
  Receipt Date: 20140613
  Transmission Date: 20141212
  Serious: Yes (Life-Threatening)
  Sender: FDA-Public Use
  Company Number: ES-B.I. PHARMACEUTICALS,INC./RIDGEFIELD-2014-BI-26533ES

PATIENT
  Age: 67 Year
  Sex: Female

DRUGS (9)
  1. PRADAXA [Suspect]
     Indication: ATRIAL FIBRILLATION
     Dosage: 150 MG
     Route: 048
     Dates: start: 20131217, end: 20131217
  2. PAROXETINA [Suspect]
     Indication: PRODUCT USED FOR UNKNOWN INDICATION
     Dosage: 20 MG
     Route: 048
  3. ENOXAPARINA [Suspect]
     Indication: ATRIAL FIBRILLATION
     Dosage: 160 MG
     Route: 058
     Dates: start: 20131214, end: 20131216
  4. ALDOCUMAR [Suspect]
     Indication: ATRIAL FIBRILLATION
     Dosage: 5 MG
     Route: 048
     Dates: start: 20131213, end: 20131216
  5. EVEROLIMUS [Concomitant]
     Indication: LIVER TRANSPLANT
     Dosage: 0.25 MG
     Route: 048
  6. CICLOSPORINA [Concomitant]
     Indication: LIVER TRANSPLANT
     Dosage: 12.5 MG
     Route: 048
  7. ZOLPIDEM [Concomitant]
     Indication: PRODUCT USED FOR UNKNOWN INDICATION
     Route: 065
  8. ENALAPRIL [Concomitant]
     Indication: PRODUCT USED FOR UNKNOWN INDICATION
     Route: 065
  9. ABLATION [Concomitant]
     Indication: ATRIAL FLUTTER
     Route: 065

REACTIONS (2)
  - Muscle haemorrhage [Recovered/Resolved]
  - Drug interaction [Unknown]
